FAERS Safety Report 9419818 (Version 2)
Quarter: 2013Q3

REPORT INFORMATION
  Report Type: Spontaneous
  Country: US (occurrence: None)
  Receive Date: 20130723
  Receipt Date: 20130925
  Transmission Date: 20140515
  Serious: Yes (Other)
  Sender: FDA-Public Use
  Company Number: JPI-P-033567

PATIENT
  Age: 44 Year
  Sex: Female
  Weight: 98.43 kg

DRUGS (5)
  1. XYREM [Suspect]
     Indication: CATAPLEXY
     Dosage: 4.5GM (2.25GM 2 IN 1 D) ORAL
     Route: 048
     Dates: start: 20130624, end: 2013
  2. METHYLPHENIDATE HYDROCHLORIDE [Concomitant]
  3. AMLODIPINE BESYLATE [Concomitant]
  4. HYDROCODONE [Concomitant]
  5. FUROSEMIDE [Concomitant]

REACTIONS (6)
  - Blood pressure increased [None]
  - Anxiety [None]
  - Skin warm [None]
  - Sensation of pressure [None]
  - Dizziness [None]
  - Feeling hot [None]
